FAERS Safety Report 24420561 (Version 2)
Quarter: 2024Q4

REPORT INFORMATION
  Report Type: Spontaneous
  Country: TR (occurrence: TR)
  Receive Date: 20241010
  Receipt Date: 20241023
  Transmission Date: 20250115
  Serious: Yes (Other)
  Sender: ALKEM
  Company Number: TR-ALKEM LABORATORIES LIMITED-TR-ALKEM-2024-23241

PATIENT
  Age: 5 Year
  Sex: Male

DRUGS (10)
  1. AZATHIOPRINE [Suspect]
     Active Substance: AZATHIOPRINE
     Indication: Autoimmune enteropathy
     Dosage: UNK
     Route: 065
  2. AZATHIOPRINE [Suspect]
     Active Substance: AZATHIOPRINE
     Indication: Cytomegalovirus infection
  3. COTRIMOXAZOLE [Concomitant]
     Active Substance: SULFAMETHOXAZOLE\TRIMETHOPRIM
     Indication: Cytomegalovirus infection
     Dosage: UNK
     Route: 065
  4. COTRIMOXAZOLE [Concomitant]
     Active Substance: SULFAMETHOXAZOLE\TRIMETHOPRIM
     Indication: Autoimmune enteropathy
  5. GANCICLOVIR [Concomitant]
     Active Substance: GANCICLOVIR
     Indication: Cytomegalovirus infection
     Dosage: UNK
     Route: 065
  6. GANCICLOVIR [Concomitant]
     Active Substance: GANCICLOVIR
     Indication: Autoimmune enteropathy
  7. Immunoglobulin [Concomitant]
     Indication: Cytomegalovirus infection
     Dosage: UNK
     Route: 042
  8. Immunoglobulin [Concomitant]
     Indication: Autoimmune enteropathy
  9. PREDNISOLONE [Concomitant]
     Active Substance: PREDNISOLONE
     Indication: Cytomegalovirus infection
     Dosage: UNK
     Route: 065
  10. PREDNISOLONE [Concomitant]
     Active Substance: PREDNISOLONE
     Indication: Autoimmune enteropathy

REACTIONS (6)
  - Bone marrow failure [Unknown]
  - Respiratory failure [Unknown]
  - Bicytopenia [Unknown]
  - Neutropenia [Recovering/Resolving]
  - Pseudomonas infection [Unknown]
  - Mycobacterial infection [Unknown]
